FAERS Safety Report 20758404 (Version 1)
Quarter: 2022Q2

REPORT INFORMATION
  Report Type: Spontaneous
  Country: US (occurrence: None)
  Receive Date: 20220427
  Receipt Date: 20220427
  Transmission Date: 20220720
  Serious: No
  Sender: FDA-Public Use
  Company Number: None

PATIENT

DRUGS (2)
  1. FAMOTIDINE [Suspect]
     Active Substance: FAMOTIDINE
  2. FAMOTIDINE [Suspect]
     Active Substance: FAMOTIDINE

REACTIONS (2)
  - Incorrect dose administered [None]
  - Product dispensing error [None]
